FAERS Safety Report 9721932 (Version 5)
Quarter: 2014Q3

REPORT INFORMATION
  Report Type: Report from Study
  Country: BR (occurrence: BR)
  Receive Date: 20131202
  Receipt Date: 20140915
  Transmission Date: 20150326
  Serious: Yes (Other)
  Sender: FDA-Public Use
  Company Number: BR-ROCHE-788019

PATIENT
  Sex: Female
  Weight: 65 kg

DRUGS (6)
  1. ACTEMRA [Suspect]
     Active Substance: TOCILIZUMAB
     Indication: OSTEOARTHRITIS
  2. DEFLAZACORT [Concomitant]
     Active Substance: DEFLAZACORT
     Route: 065
  3. ACTEMRA [Suspect]
     Active Substance: TOCILIZUMAB
     Indication: RHEUMATOID ARTHRITIS
     Dosage: LAST INFUSION OF TOCILIZUMAB ON ON 18/NOV/2013.
     Route: 042
  4. FAMOTIDINE. [Concomitant]
     Active Substance: FAMOTIDINE
     Route: 065
  5. NIMESULIDE [Concomitant]
     Active Substance: NIMESULIDE
     Route: 065
  6. ENBREL [Concomitant]
     Active Substance: ETANERCEPT

REACTIONS (11)
  - Blood glucose increased [Recovering/Resolving]
  - Sluggishness [Not Recovered/Not Resolved]
  - Arthropathy [Not Recovered/Not Resolved]
  - Peripheral swelling [Recovered/Resolved]
  - Pain [Recovering/Resolving]
  - Pain in extremity [Not Recovered/Not Resolved]
  - Vitamin D decreased [Recovered/Resolved]
  - Blood pressure increased [Recovering/Resolving]
  - Drug ineffective [Unknown]
  - Therapeutic response decreased [Unknown]
  - Swelling [Not Recovered/Not Resolved]

NARRATIVE: CASE EVENT DATE: 2010
